APPROVED DRUG PRODUCT: DITATE-DS
Active Ingredient: ESTRADIOL VALERATE; TESTOSTERONE ENANTHATE
Strength: 8MG/ML;180MG/ML
Dosage Form/Route: INJECTABLE;INJECTION
Application: A086423 | Product #001
Applicant: SAVAGE LABORATORIES INC DIV ALTANA INC
Approved: Approved Prior to Jan 1, 1982 | RLD: No | RS: No | Type: DISCN